FAERS Safety Report 5786511-5 (Version None)
Quarter: 2008Q2

REPORT INFORMATION
  Report Type: 
  Country: None (occurrence: None)
  Receive Date: 20080624
  Receipt Date: 20080618
  Transmission Date: 20081010
  Serious: Yes (Death, Hospitalization, Other)
  Sender: FDA-Public Use
  Company Number: NL-BOEHRINGER INGELHEIM GMBH, GERMANY-2008-DE-03339GD

PATIENT
  Age: 76 Year
  Sex: Male

DRUGS (8)
  1. DIPYRIDAMOLE [Suspect]
     Indication: ANTICOAGULANT THERAPY
     Dates: start: 20020501
  2. ASPIRIN [Suspect]
     Indication: ANTICOAGULANT THERAPY
     Dates: start: 20020501, end: 20070301
  3. PHENPROCOUMON [Suspect]
     Indication: ANTICOAGULANT THERAPY
     Dates: start: 20060101, end: 20070301
  4. COLCHICINE [Suspect]
     Indication: GOUT
  5. AMLODIPINE [Concomitant]
  6. METOPROLOL ZOC [Concomitant]
  7. LISINOPRIL [Concomitant]
  8. CALCI CHEW [Concomitant]

REACTIONS (11)
  - CEREBRAL HAEMORRHAGE [None]
  - CEREBROVASCULAR ACCIDENT [None]
  - DISORIENTATION [None]
  - INTERNATIONAL NORMALISED RATIO INCREASED [None]
  - LOSS OF CONSCIOUSNESS [None]
  - MALAISE [None]
  - MEDICATION ERROR [None]
  - NAUSEA [None]
  - PNEUMONIA [None]
  - REBOUND EFFECT [None]
  - VOMITING [None]
